FAERS Safety Report 8320077-0 (Version None)
Quarter: 2012Q2

REPORT INFORMATION
  Report Type: 
  Country: None (occurrence: None)
  Receive Date: 20120428
  Receipt Date: 20120419
  Transmission Date: 20120825
  Serious: Yes (Hospitalization, Other)
  Sender: FDA-Public Use
  Company Number: JP-VERTEX PHARMACEUTICALS INC.-AE-2012-002667

PATIENT
  Age: 66 Year
  Sex: Female

DRUGS (16)
  1. REBETOL [Concomitant]
     Route: 048
     Dates: start: 20120220, end: 20120312
  2. REBETOL [Concomitant]
     Route: 048
     Dates: start: 20120403, end: 20120408
  3. ZETIA [Concomitant]
     Route: 048
  4. TELAVIC (TELAPREVIR) [Suspect]
     Route: 048
     Dates: start: 20120220, end: 20120304
  5. REBETOL [Concomitant]
     Route: 048
     Dates: start: 20120327, end: 20120402
  6. PEG-INTRON [Concomitant]
     Indication: HEPATITIS C
     Route: 058
     Dates: start: 20120124, end: 20120219
  7. MOTILIUM [Concomitant]
     Route: 048
     Dates: start: 20120124
  8. REBETOL [Concomitant]
     Indication: HEPATITIS C
     Route: 048
     Dates: start: 20120124, end: 20120219
  9. PEG-INTRON [Concomitant]
     Route: 058
     Dates: start: 20120220, end: 20120326
  10. LEVOTHYROXINE SODIUM [Concomitant]
     Route: 048
  11. TELAVIC (TELAPREVIR) [Suspect]
     Indication: HEPATITIS C
     Route: 048
     Dates: start: 20120124, end: 20120213
  12. EDIROL [Concomitant]
     Route: 048
  13. TELAVIC (TELAPREVIR) [Suspect]
     Route: 048
     Dates: start: 20120327, end: 20120416
  14. PEG-INTRON [Concomitant]
     Route: 058
     Dates: start: 20120327
  15. TELAVIC (TELAPREVIR) [Suspect]
     Route: 048
     Dates: start: 20120214, end: 20120219
  16. REBETOL [Concomitant]
     Route: 048
     Dates: start: 20120409

REACTIONS (3)
  - PNEUMONIA [None]
  - WHITE BLOOD CELL COUNT DECREASED [None]
  - HAEMOGLOBIN DECREASED [None]
